FAERS Safety Report 13536220 (Version 5)
Quarter: 2017Q3

REPORT INFORMATION
  Report Type: Spontaneous
  Country: US (occurrence: US)
  Receive Date: 20170511
  Receipt Date: 20170817
  Transmission Date: 20171127
  Serious: Yes (Hospitalization)
  Sender: FDA-Public Use
  Company Number: US-PFIZER INC-2017205640

PATIENT
  Age: 41 Year
  Sex: Male
  Weight: 98 kg

DRUGS (3)
  1. LYRICA [Suspect]
     Active Substance: PREGABALIN
     Indication: PAIN IN EXTREMITY
     Dosage: 600 MG, DAILY, TWO IN THE MORNING AND ONE IN THE EVENING (STRENGTH 200 MG)
     Dates: start: 2013
  2. LYRICA [Suspect]
     Active Substance: PREGABALIN
     Indication: BODY TEMPERATURE ABNORMAL
  3. LYRICA [Suspect]
     Active Substance: PREGABALIN
     Indication: PAIN
     Dosage: 20 MG, 2X/DAY
     Dates: start: 201211

REACTIONS (3)
  - Intentional product misuse [Unknown]
  - Sleep disorder [Not Recovered/Not Resolved]
  - Drug effect incomplete [Not Recovered/Not Resolved]

NARRATIVE: CASE EVENT DATE: 2013
